FAERS Safety Report 15000623 (Version 2)
Quarter: 2018Q2

REPORT INFORMATION
  Report Type: Spontaneous
  Country: ES (occurrence: ES)
  Receive Date: 20180612
  Receipt Date: 20180626
  Transmission Date: 20180711
  Serious: Yes (Other)
  Sender: FDA-Public Use
  Company Number: ES-PFIZER INC-2018236297

PATIENT
  Age: 66 Year
  Sex: Female

DRUGS (2)
  1. CAPECITABINE. [Suspect]
     Active Substance: CAPECITABINE
     Dosage: 1650 MG/M2, CYCLIC (TWICE A DAY; DAYS 1-14 EVERY 21 DAYS)
     Route: 048
  2. CAPECITABINE. [Suspect]
     Active Substance: CAPECITABINE
     Indication: INVASIVE DUCTAL BREAST CARCINOMA
     Dosage: 1800 MG/M2, CYCLIC (EVERY 12 HOURS FOR 14 DAYS OF EACH 21-DAY CYCLE)
     Route: 048

REACTIONS (1)
  - Palmar-plantar erythrodysaesthesia syndrome [Unknown]
